FAERS Safety Report 26088808 (Version 1)
Quarter: 2025Q4

REPORT INFORMATION
  Report Type: Spontaneous
  Country: US (occurrence: US)
  Receive Date: 20251125
  Receipt Date: 20251125
  Transmission Date: 20260118
  Serious: No
  Sender: PFIZER
  Company Number: US-PFIZER INC-202500229368

PATIENT
  Age: 64 Year
  Sex: Female
  Weight: 83.91 kg

DRUGS (3)
  1. DIFLUCAN [Suspect]
     Active Substance: FLUCONAZOLE
     Indication: Fungal infection
     Dosage: 150 MG
     Route: 048
     Dates: start: 2025, end: 2025
  2. DIFLUCAN [Suspect]
     Active Substance: FLUCONAZOLE
     Indication: Candida infection
     Dosage: 150 MG (SECOND DOSE)
     Route: 048
     Dates: start: 2025, end: 2025
  3. DIFLUCAN [Suspect]
     Active Substance: FLUCONAZOLE
     Dosage: 100 MG, 2X/DAY
     Route: 048
     Dates: start: 202510, end: 2025

REACTIONS (2)
  - Drug ineffective [Unknown]
  - Off label use [Unknown]

NARRATIVE: CASE EVENT DATE: 20250101
